FAERS Safety Report 4751169-0 (Version None)
Quarter: 2005Q3

REPORT INFORMATION
  Report Type: 
  Country: None (occurrence: None)
  Receive Date: 20050822
  Receipt Date: 20050815
  Transmission Date: 20060218
  Serious: Yes (Other)
  Sender: FDA-Public Use
  Company Number: 2005116304

PATIENT
  Age: 61 Year
  Sex: Male
  Weight: 80 kg

DRUGS (2)
  1. SORTIS (ATORVASTATIN) [Suspect]
     Indication: LIPID METABOLISM DISORDER
     Dosage: 20 MG (20 MG, DAILY), ORAL
     Route: 048
     Dates: start: 20010801, end: 20021101
  2. CERIVASTATIN [Concomitant]

REACTIONS (7)
  - FATIGUE [None]
  - MUSCLE DISORDER [None]
  - MYALGIA [None]
  - MYOPATHY [None]
  - PAIN IN EXTREMITY [None]
  - TENDON RUPTURE [None]
  - TREATMENT NONCOMPLIANCE [None]
